FAERS Safety Report 5461082-1 (Version None)
Quarter: 2007Q3

REPORT INFORMATION
  Report Type: 
  Country: None (occurrence: None)
  Receive Date: 20070918
  Receipt Date: 20070918
  Transmission Date: 20080115
  Serious: Yes (Other)
  Sender: FDA-Public Use
  Company Number: None

PATIENT

DRUGS (2)
  1. TRAMADOL HCL [Suspect]
     Indication: PAIN
     Dosage: PO
     Route: 048
  2. ULTRAM ER [Suspect]

REACTIONS (3)
  - DRUG ABUSER [None]
  - LEGAL PROBLEM [None]
  - MEDICATION ERROR [None]
